FAERS Safety Report 15454024 (Version 2)
Quarter: 2018Q4

REPORT INFORMATION
  Report Type: Spontaneous
  Country: JP (occurrence: JP)
  Receive Date: 20181002
  Receipt Date: 20181101
  Transmission Date: 20190204
  Serious: Yes (Hospitalization, Other)
  Sender: FDA-Public Use
  Company Number: JP-AMGEN-JPNSP2018136427

PATIENT
  Age: 57 Year
  Sex: Female

DRUGS (9)
  1. AMLODIPINE [Concomitant]
     Active Substance: AMLODIPINE BESYLATE
     Indication: HYPERTENSION
     Dosage: 5 MG
     Route: 048
  2. G-LASTA [Suspect]
     Active Substance: PEGFILGRASTIM
     Indication: PRODUCT USED FOR UNKNOWN INDICATION
     Dosage: 3.6 MG, UNK
     Route: 058
     Dates: start: 20180820
  3. DOCETAXEL. [Concomitant]
     Active Substance: DOCETAXEL
     Dosage: 75 MG/M2, QD
     Route: 065
     Dates: start: 20180817, end: 20180817
  4. DOCETAXEL. [Concomitant]
     Active Substance: DOCETAXEL
     Indication: BREAST CANCER STAGE II
     Dosage: 75 MG/M2, QD
     Route: 065
     Dates: start: 20180726, end: 20180726
  5. DOCETAXEL. [Concomitant]
     Active Substance: DOCETAXEL
     Dosage: 63.75 MG/M2, QD
     Route: 065
  6. CYCLOPHOSPHAMIDE. [Concomitant]
     Active Substance: CYCLOPHOSPHAMIDE
     Dosage: 510 MG/M2, QD
     Route: 065
  7. FILGRASTIM [Concomitant]
     Active Substance: FILGRASTIM
     Indication: PRODUCT USED FOR UNKNOWN INDICATION
     Dosage: UNK
     Route: 065
     Dates: start: 20180802
  8. CYCLOPHOSPHAMIDE. [Concomitant]
     Active Substance: CYCLOPHOSPHAMIDE
     Indication: BREAST CANCER STAGE II
     Dosage: 600 MG/M2, QD
     Route: 065
     Dates: start: 20180726, end: 20180726
  9. CYCLOPHOSPHAMIDE. [Concomitant]
     Active Substance: CYCLOPHOSPHAMIDE
     Dosage: 600 MG/M2, QD
     Route: 065
     Dates: start: 20180817, end: 20180817

REACTIONS (4)
  - Pyrexia [Recovered/Resolved]
  - Hypoxia [Recovered/Resolved]
  - Cytokine storm [Recovered/Resolved]
  - Computerised tomogram thorax abnormal [Recovered/Resolved]

NARRATIVE: CASE EVENT DATE: 20180821
